FAERS Safety Report 14434559 (Version 4)
Quarter: 2018Q2

REPORT INFORMATION
  Report Type: Report from Study
  Country: US (occurrence: US)
  Receive Date: 20180124
  Receipt Date: 20180405
  Transmission Date: 20180711
  Serious: Yes (Hospitalization)
  Sender: FDA-Public Use
  Company Number: US-BIOGEN-2018BI00514602

PATIENT
  Age: 46 Year
  Sex: Male
  Weight: 145.28 kg

DRUGS (1)
  1. ZINBRYTA [Suspect]
     Active Substance: DACLIZUMAB
     Indication: MULTIPLE SCLEROSIS
     Route: 058
     Dates: start: 20161219, end: 201802

REACTIONS (7)
  - Lymphadenopathy [Not Recovered/Not Resolved]
  - Sepsis [Unknown]
  - Abscess [Unknown]
  - Rash generalised [Unknown]
  - Liver function test increased [Unknown]
  - Micturition disorder [Not Recovered/Not Resolved]
  - Constipation [Not Recovered/Not Resolved]

NARRATIVE: CASE EVENT DATE: 2018
